FAERS Safety Report 14192236 (Version 1)
Quarter: 2017Q4

REPORT INFORMATION
  Report Type: Spontaneous
  Country: US (occurrence: US)
  Receive Date: 20171115
  Receipt Date: 20171115
  Transmission Date: 20180321
  Serious: Yes (Hospitalization)
  Sender: FDA-Public Use
  Company Number: US-SA-2017SA218183

PATIENT
  Age: 21 Year
  Sex: Male

DRUGS (4)
  1. DIPHENHYDRAMINE. [Suspect]
     Active Substance: DIPHENHYDRAMINE
     Indication: DRUG ABUSE
     Route: 065
  2. LEVETIRACETAM. [Concomitant]
     Active Substance: LEVETIRACETAM
  3. PHENYTOIN. [Concomitant]
     Active Substance: PHENYTOIN
  4. HALOPERIDOL. [Concomitant]
     Active Substance: HALOPERIDOL

REACTIONS (21)
  - Psychotic disorder [Recovering/Resolving]
  - Dysarthria [Recovering/Resolving]
  - Hyperreflexia [Recovering/Resolving]
  - Metanephrine urine increased [Recovering/Resolving]
  - Drug abuse [Unknown]
  - Reduced facial expression [Recovering/Resolving]
  - Dysphonia [Recovering/Resolving]
  - Staring [Recovering/Resolving]
  - Slow response to stimuli [Recovering/Resolving]
  - Mental status changes [Recovering/Resolving]
  - Epinephrine increased [Recovering/Resolving]
  - Seizure [Recovering/Resolving]
  - Sinus tachycardia [Recovering/Resolving]
  - Salivary hypersecretion [Recovering/Resolving]
  - Gaze palsy [Recovering/Resolving]
  - Drug withdrawal syndrome [Recovering/Resolving]
  - Tremor [Recovering/Resolving]
  - Hyperhidrosis [Recovering/Resolving]
  - Flushing [Recovering/Resolving]
  - Mydriasis [Recovering/Resolving]
  - Postural tremor [Recovering/Resolving]
